FAERS Safety Report 4364674-6 (Version None)
Quarter: 2004Q2

REPORT INFORMATION
  Report Type: 
  Country: None (occurrence: None)
  Receive Date: 20040526
  Receipt Date: 20040115
  Transmission Date: 20050107
  Serious: No
  Sender: FDA-Public Use
  Company Number: US-GLAXOSMITHKLINE-A0493456A

PATIENT
  Sex: Female

DRUGS (23)
  1. FLOLAN [Suspect]
     Route: 042
     Dates: start: 20030601
  2. PREDNISONE [Concomitant]
  3. NEURONTIN [Concomitant]
  4. HUMULIN N [Concomitant]
  5. HUMULIN R [Concomitant]
  6. ACTONEL [Concomitant]
  7. BACTRIM DS [Concomitant]
  8. UNKNOWN MEDICATION [Concomitant]
  9. PROZAC [Concomitant]
  10. MYCELEX [Concomitant]
  11. MAG-OX [Concomitant]
  12. VIT D [Concomitant]
  13. NEXIUM [Concomitant]
  14. LASIX [Concomitant]
  15. SINGULAIR [Concomitant]
  16. COLCHICINE [Concomitant]
  17. PHENERGAN [Concomitant]
  18. TESSALON [Concomitant]
  19. LIPITOR [Concomitant]
  20. GLUCOPHAGE [Concomitant]
  21. CALCIUM [Concomitant]
  22. COUMADIN [Concomitant]
  23. PERCOCET [Concomitant]

REACTIONS (1)
  - MIDDLE EAR EFFUSION [None]
